FAERS Safety Report 5430390-2 (Version None)
Quarter: 2007Q3

REPORT INFORMATION
  Report Type: 
  Country: None (occurrence: None)
  Receive Date: 20070830
  Receipt Date: 20070827
  Transmission Date: 20080115
  Serious: Yes (Life-Threatening, Other)
  Sender: FDA-Public Use
  Company Number: DE-JNJFOC-20070603847

PATIENT
  Sex: Female
  Weight: 63 kg

DRUGS (5)
  1. RISPERDAL [Suspect]
     Indication: SCHIZOAFFECTIVE DISORDER
     Route: 048
  2. MOCLOBEMID [Concomitant]
     Indication: DEPRESSIVE SYMPTOM
     Route: 048
  3. TRIMIPRAMINE MALEATE [Concomitant]
     Indication: SLEEP DISORDER
     Route: 048
  4. SEROQUEL [Concomitant]
     Indication: SCHIZOAFFECTIVE DISORDER
     Route: 048
  5. AURORIX [Concomitant]

REACTIONS (5)
  - BLOOD PROLACTIN INCREASED [None]
  - BREAST CANCER [None]
  - BREAST CANCER STAGE II [None]
  - OESTROGEN RECEPTOR ASSAY POSITIVE [None]
  - PROGESTERONE RECEPTOR ASSAY POSITIVE [None]
